FAERS Safety Report 10713685 (Version 1)
Quarter: 2015Q1

REPORT INFORMATION
  Report Type: Spontaneous
  Country: CZ (occurrence: CZ)
  Receive Date: 20150115
  Receipt Date: 20150115
  Transmission Date: 20150721
  Serious: Yes (Other)
  Sender: FDA-Public Use
  Company Number: PHHY2009CZ47636

PATIENT
  Age: 45 Year
  Sex: Male

DRUGS (3)
  1. PREDNISONE. [Suspect]
     Active Substance: PREDNISONE
     Indication: HYPERGAMMAGLOBULINAEMIA BENIGN MONOCLONAL
  2. PREDNISONE. [Suspect]
     Active Substance: PREDNISONE
     Indication: SCHNITZLER^S SYNDROME
     Dosage: 30 MG, QD
     Route: 065
  3. CICLOSPORIN [Suspect]
     Active Substance: CYCLOSPORINE
     Indication: SCHNITZLER^S SYNDROME
     Dosage: 300 MG
     Route: 065
     Dates: start: 200406

REACTIONS (4)
  - Diabetes mellitus [Unknown]
  - Fungal skin infection [Unknown]
  - Product use issue [Unknown]
  - Drug ineffective [Unknown]

NARRATIVE: CASE EVENT DATE: 2004
